FAERS Safety Report 6503898-6 (Version None)
Quarter: 2009Q4

REPORT INFORMATION
  Report Type: 
  Country: None (occurrence: None)
  Receive Date: 20091216
  Receipt Date: 20091216
  Transmission Date: 20100525
  Serious: Yes (Hospitalization)
  Sender: FDA-Public Use
  Company Number: None

PATIENT
  Sex: Male
  Weight: 86.3 kg

DRUGS (5)
  1. MEMANTINE HCL [Suspect]
     Dosage: 680 MG
  2. COLCHICINE [Concomitant]
  3. METOPROLOL TARTRATE [Concomitant]
  4. SIMVASTATIN [Concomitant]
  5. WARFARIN SODIUM [Concomitant]

REACTIONS (4)
  - FALL [None]
  - HAND FRACTURE [None]
  - LIMB INJURY [None]
  - OSTEOARTHRITIS [None]
